FAERS Safety Report 15931979 (Version 1)
Quarter: 2019Q1

REPORT INFORMATION
  Report Type: Spontaneous
  Country: PT (occurrence: PT)
  Receive Date: 20190207
  Receipt Date: 20190207
  Transmission Date: 20190417
  Serious: Yes (Hospitalization)
  Sender: FDA-Public Use
  Company Number: PT-ROCHE-2256092

PATIENT
  Age: 62 Year
  Sex: Male

DRUGS (8)
  1. DIAZEPAM. [Suspect]
     Active Substance: DIAZEPAM
     Indication: ABNORMAL BEHAVIOUR
     Route: 042
  2. CARBAMAZEPINE. [Suspect]
     Active Substance: CARBAMAZEPINE
     Indication: ALCOHOLISM
  3. PHENYTOIN. [Suspect]
     Active Substance: PHENYTOIN
     Indication: ABNORMAL BEHAVIOUR
     Route: 065
  4. DIAZEPAM. [Suspect]
     Active Substance: DIAZEPAM
     Indication: ALCOHOLISM
     Route: 042
  5. TIAPRIDE HYDROCHLORIDE [Suspect]
     Active Substance: TIAPRIDE HYDROCHLORIDE
     Indication: ALCOHOLISM
  6. CARBAMAZEPINE. [Suspect]
     Active Substance: CARBAMAZEPINE
     Indication: ABNORMAL BEHAVIOUR
     Route: 065
  7. PHENYTOIN. [Suspect]
     Active Substance: PHENYTOIN
     Indication: ALCOHOLISM
  8. TIAPRIDE HYDROCHLORIDE [Suspect]
     Active Substance: TIAPRIDE HYDROCHLORIDE
     Indication: ABNORMAL BEHAVIOUR
     Route: 065

REACTIONS (14)
  - Myoclonus [Recovering/Resolving]
  - Neuroleptic malignant syndrome [Recovering/Resolving]
  - Renal impairment [Recovered/Resolved]
  - Dyskinesia [Unknown]
  - Gait disturbance [Unknown]
  - Altered state of consciousness [Recovering/Resolving]
  - Muscle rigidity [Unknown]
  - Toxicity to various agents [Unknown]
  - Dystonia [Unknown]
  - Enzyme level increased [Unknown]
  - Leukocytosis [Unknown]
  - Musculoskeletal stiffness [Recovered/Resolved]
  - Rhabdomyolysis [Recovered/Resolved]
  - Atrophy [Unknown]
